FAERS Safety Report 5197957-0 (Version None)
Quarter: 2006Q4

REPORT INFORMATION
  Report Type: 
  Country: None (occurrence: None)
  Receive Date: 20061228
  Receipt Date: 20061218
  Transmission Date: 20070319
  Serious: Yes (Hospitalization, Disabling)
  Sender: FDA-Public Use
  Company Number: TPA2006A01991

PATIENT
  Age: 42 Year
  Sex: Male
  Weight: 113.3993 kg

DRUGS (13)
  1. ACTOS [Suspect]
     Indication: DIABETES MELLITUS NON-INSULIN-DEPENDENT
     Dosage: 45 MG, 1 IN 1 D, PER ORAL
     Route: 048
     Dates: start: 19990101
  2. FENTANYL [Concomitant]
  3. GEMFIBROZIL [Concomitant]
  4. GABAPENTIN [Concomitant]
  5. METFORMIN HCL [Concomitant]
  6. LISINOPRIL/HCTZ (HYDROCHOROTHIAZIDE, LISINOPRIL) [Concomitant]
  7. LOVASTATIN [Concomitant]
  8. ZETIA [Concomitant]
  9. BUMETANIDE [Concomitant]
  10. RANITDINE (RANITIDINE) [Concomitant]
  11. GLYBURIRDE (GLIBENCLAMIDE) [Concomitant]
  12. LIPRAM-PN10 (AMYLASE, PROTEASE, LIPASE) [Concomitant]
  13. ALLOPURINOL [Concomitant]

REACTIONS (10)
  - DEPRESSION [None]
  - DIABETIC COMPLICATION [None]
  - GAIT DISTURBANCE [None]
  - GALLBLADDER DISORDER [None]
  - GASTRIC DISORDER [None]
  - GOUT [None]
  - LOCALISED INFECTION [None]
  - NEUROPATHIC ARTHROPATHY [None]
  - PANCREATITIS CHRONIC [None]
  - SKIN DISCOLOURATION [None]
